FAERS Safety Report 9251555 (Version 2)
Quarter: 2013Q2

REPORT INFORMATION
  Report Type: Spontaneous
  Country: US (occurrence: US)
  Receive Date: 20130424
  Receipt Date: 20130503
  Transmission Date: 20140414
  Serious: Yes (Other)
  Sender: FDA-Public Use
  Company Number: US-JNJFOC-20130410039

PATIENT
  Age: 39 Year
  Sex: Female
  Weight: 44.45 kg

DRUGS (2)
  1. ZYRTEC IR [Suspect]
     Route: 048
  2. ZYRTEC IR [Suspect]
     Indication: SEASONAL ALLERGY
     Route: 048
     Dates: start: 20130416, end: 20130416

REACTIONS (4)
  - Balance disorder [Not Recovered/Not Resolved]
  - Feeling abnormal [Not Recovered/Not Resolved]
  - Product quality issue [None]
  - Visual impairment [None]
